FAERS Safety Report 10863379 (Version 1)
Quarter: 2015Q1

REPORT INFORMATION
  Report Type: Spontaneous
  Country: US (occurrence: US)
  Receive Date: 20150223
  Receipt Date: 20150223
  Transmission Date: 20150721
  Serious: Yes (Other)
  Sender: FDA-Public Use
  Company Number: US-CELGENEUS-163-21880-14074833

PATIENT
  Age: 61 Year
  Sex: Male
  Weight: 98.9 kg

DRUGS (11)
  1. REVLIMID [Suspect]
     Active Substance: LENALIDOMIDE
     Indication: LYMPHOMA
     Route: 048
     Dates: start: 20140703
  2. NEUPOGEN [Concomitant]
     Active Substance: FILGRASTIM
     Indication: NEUTROPENIA
     Dosage: 480MCG/0.8 ML
     Route: 065
     Dates: start: 20141031
  3. VITAMIN D [Concomitant]
     Active Substance: CHOLECALCIFEROL
     Indication: PRODUCT USED FOR UNKNOWN INDICATION
     Route: 065
  4. TYLENOL [Concomitant]
     Active Substance: ACETAMINOPHEN
     Indication: PRODUCT USED FOR UNKNOWN INDICATION
     Route: 065
  5. REVLIMID [Suspect]
     Active Substance: LENALIDOMIDE
     Route: 048
     Dates: start: 201407
  6. BACTRIM [Concomitant]
     Active Substance: SULFAMETHOXAZOLE\TRIMETHOPRIM
     Indication: PRODUCT USED FOR UNKNOWN INDICATION
     Route: 065
  7. DOXYCYCLINE. [Concomitant]
     Active Substance: DOXYCYCLINE
     Indication: SINUSITIS
     Route: 065
     Dates: start: 2014, end: 2014
  8. AMLODIPINE [Concomitant]
     Active Substance: AMLODIPINE BESYLATE
     Indication: HYPERTENSION
     Route: 048
     Dates: start: 20140530
  9. ACYCLOVIR. [Concomitant]
     Active Substance: ACYCLOVIR
     Indication: PRODUCT USED FOR UNKNOWN INDICATION
     Dosage: 480 MICROGRAM
     Route: 065
  10. REVLIMID [Suspect]
     Active Substance: LENALIDOMIDE
     Route: 048
     Dates: start: 201408
  11. PEPCID [Concomitant]
     Active Substance: FAMOTIDINE
     Indication: PRODUCT USED FOR UNKNOWN INDICATION
     Route: 065

REACTIONS (3)
  - Oedema peripheral [Unknown]
  - Thrombosis [Unknown]
  - White blood cell count decreased [Unknown]

NARRATIVE: CASE EVENT DATE: 201407
